FAERS Safety Report 16865529 (Version 1)
Quarter: 2019Q3

REPORT INFORMATION
  Report Type: Spontaneous
  Country: BE (occurrence: BE)
  Receive Date: 20190930
  Receipt Date: 20190930
  Transmission Date: 20191005
  Serious: Yes (Other)
  Sender: FDA-Public Use
  Company Number: BE-OCTA-GAM17219BE

PATIENT
  Age: 74 Year
  Sex: Female

DRUGS (1)
  1. OCTAGAM IMMUNE GLOBULIN (HUMAN) [Suspect]
     Active Substance: HUMAN IMMUNOGLOBULIN G
     Indication: CHRONIC INFLAMMATORY DEMYELINATING POLYRADICULONEUROPATHY
     Dosage: 30 /30 /20 G GIVEN OVER 3 CONSECUTIVE DAYS
     Route: 042

REACTIONS (2)
  - Dyshidrotic eczema [Recovered/Resolved]
  - Eczema [Recovered/Resolved]
